FAERS Safety Report 20563184 (Version 8)
Quarter: 2022Q4

REPORT INFORMATION
  Report Type: Report from Study
  Country: ES (occurrence: None)
  Receive Date: 20220308
  Receipt Date: 20221110
  Transmission Date: 20230112
  Serious: Yes (Life-Threatening)
  Sender: FDA-Public Use
  Company Number: ES-ROCHE-3043355

PATIENT
  Age: 58 Year
  Sex: Female
  Weight: 56 kg

DRUGS (6)
  1. OCRELIZUMAB [Suspect]
     Active Substance: OCRELIZUMAB
     Indication: Relapsing-remitting multiple sclerosis
     Dosage: FIRST DOSE ADMINISTERED AS DUAL INFUSIONS ON DAY 1 AND DAY 15 OF FIRST 24-WEEK CYCLE (AS PER PROTOCO
     Route: 042
     Dates: start: 20090311, end: 20090311
  2. OCRELIZUMAB [Suspect]
     Active Substance: OCRELIZUMAB
     Indication: Relapsing-remitting multiple sclerosis
     Dosage: MOST RECENT DOSE OF BLINDED OCRELIZUMAB PRIOR TO SAE WAS RECEIVED ON: 13/DEC/2021.?FIRST DOSE ADMINI
     Route: 042
     Dates: start: 20090311
  3. ROPINIROLE [Concomitant]
     Active Substance: ROPINIROLE
     Dates: start: 20190821
  4. OMEPRAZOLE [Concomitant]
     Active Substance: OMEPRAZOLE
     Dates: start: 20220110
  5. LEVOTHYROXINE [Concomitant]
     Active Substance: LEVOTHYROXINE
  6. METHADONE [Concomitant]
     Active Substance: METHADONE HYDROCHLORIDE

REACTIONS (1)
  - Lung neoplasm malignant [Not Recovered/Not Resolved]

NARRATIVE: CASE EVENT DATE: 20220228
